FAERS Safety Report 9036290 (Version 1)
Quarter: 2013Q1

REPORT INFORMATION
  Report Type: Spontaneous
  Country: US (occurrence: None)
  Receive Date: 20130117
  Receipt Date: 20130117
  Transmission Date: 20140127
  Serious: Yes (Other)
  Sender: FDA-Public Use
  Company Number: None

PATIENT
  Age: 55 Year
  Sex: Female
  Weight: 68.04 kg

DRUGS (3)
  1. BUPROPRION XL 150MG TAB MFG: GLOBAL [Suspect]
     Indication: ADJUSTMENT DISORDER
     Route: 048
     Dates: start: 20121130, end: 20121219
  2. BUPROPRION XL 150MG TAB MFG: GLOBAL [Suspect]
     Indication: DEPRESSION
     Route: 048
     Dates: start: 20121130, end: 20121219
  3. BUPROPRION XL 150MG TAB MFG: GLOBAL [Suspect]
     Indication: ANXIETY
     Route: 048
     Dates: start: 20121130, end: 20121219

REACTIONS (3)
  - Fatigue [None]
  - Depression [None]
  - Product quality issue [None]
